FAERS Safety Report 9238789 (Version 1)
Quarter: 2013Q2

REPORT INFORMATION
  Report Type: Spontaneous
  Country: BR (occurrence: BR)
  Receive Date: 20130418
  Receipt Date: 20130418
  Transmission Date: 20140414
  Serious: Yes (Congenital Anomaly, Other)
  Sender: FDA-Public Use
  Company Number: BR-ROCHE-1207569

PATIENT
  Age: 0 Year
  Sex: Male

DRUGS (1)
  1. ROACUTAN [Suspect]
     Indication: PRODUCT USED FOR UNKNOWN INDICATION
     Route: 064

REACTIONS (8)
  - External ear disorder [Unknown]
  - Gastrointestinal disorder [Unknown]
  - Ear canal stenosis [Unknown]
  - Ear disorder [Unknown]
  - Cardiac disorder [Unknown]
  - Gastrooesophageal reflux disease [Unknown]
  - Feeding disorder neonatal [Recovered/Resolved]
  - Maternal exposure timing unspecified [Unknown]
